FAERS Safety Report 9325589 (Version 1)
Quarter: 2013Q2

REPORT INFORMATION
  Report Type: Report from Study
  Country: IN (occurrence: IN)
  Receive Date: 20130604
  Receipt Date: 20130604
  Transmission Date: 20140414
  Serious: Yes (Death)
  Sender: FDA-Public Use
  Company Number: PHHY2012IN073669

PATIENT
  Age: 40 Year
  Sex: Male

DRUGS (2)
  1. GLIVEC [Suspect]
     Indication: CHRONIC MYELOID LEUKAEMIA
     Dosage: 600 MG
     Route: 048
  2. GLIVEC [Suspect]
     Dosage: 800 MG
     Route: 048

REACTIONS (2)
  - Death [Fatal]
  - No therapeutic response [Unknown]
